FAERS Safety Report 4282348-7 (Version None)
Quarter: 2004Q1

REPORT INFORMATION
  Report Type: 
  Country: None (occurrence: None)
  Receive Date: 20040130
  Receipt Date: 20021204
  Transmission Date: 20041129
  Serious: Yes (Disabling)
  Sender: FDA-Public Use
  Company Number: WAES 0212FRA00018

PATIENT
  Age: 67 Year
  Sex: Female

DRUGS (9)
  1. AVOCADO OIL AND SOYBEAN OIL [Concomitant]
     Indication: OSTEOARTHRITIS
     Route: 048
  2. CALCIUM (UNSPECIFIED) AND VITAMIN D (UNSPECIFIED) [Concomitant]
     Indication: OSTEOPOROSIS
     Route: 048
  3. CHONDROITIN [Concomitant]
     Indication: OSTEOARTHRITIS
     Route: 048
  4. ESTRADIOL [Concomitant]
     Indication: POSTMENOPAUSE
     Route: 061
  5. ETIDRONATE DISODIUM [Concomitant]
     Indication: OSTEOPOROSIS
     Route: 048
  6. PROGESTERONE [Concomitant]
     Indication: POSTMENOPAUSE
     Route: 048
  7. ZOCOR [Suspect]
     Indication: HYPERCHOLESTEROLAEMIA
     Route: 048
     Dates: start: 19970101, end: 20021120
  8. TRAMADOL [Concomitant]
     Indication: OSTEOARTHRITIS
     Route: 048
  9. TRIMETAZIDINE [Concomitant]
     Indication: TINNITUS
     Route: 048

REACTIONS (1)
  - TENOSYNOVITIS [None]
